FAERS Safety Report 5844648-6 (Version None)
Quarter: 2008Q3

REPORT INFORMATION
  Report Type: 
  Country: None (occurrence: None)
  Receive Date: 20080812
  Receipt Date: 20080801
  Transmission Date: 20090109
  Serious: Yes (Hospitalization)
  Sender: FDA-Public Use
  Company Number: 2008001836

PATIENT
  Age: 62 Year
  Sex: Male

DRUGS (6)
  1. TARCEVA [Suspect]
     Indication: NON-SMALL CELL LUNG CANCER
     Dosage: 150 MG, QD, ORAL
     Route: 048
     Dates: start: 20080702, end: 20080723
  2. NIAXIN [Concomitant]
  3. RABEPRAZOLE SODIUM [Concomitant]
  4. ATARAX [Concomitant]
  5. CLOBETASOL PROPIONATE [Concomitant]
  6. NEOMALLERMIN-TR [Concomitant]

REACTIONS (1)
  - CORNEAL PERFORATION [None]
